FAERS Safety Report 13039465 (Version 2)
Quarter: 2016Q4

REPORT INFORMATION
  Report Type: Spontaneous
  Country: IL (occurrence: IL)
  Receive Date: 20161219
  Receipt Date: 20161221
  Transmission Date: 20170207
  Serious: Yes (Hospitalization)
  Sender: FDA-Public Use
  Company Number: IL-EMD SERONO-8127842

PATIENT
  Age: 39 Year
  Sex: Female

DRUGS (3)
  1. COLCHICINE. [Concomitant]
     Active Substance: COLCHICINE
     Indication: FAMILIAL MEDITERRANEAN FEVER
  2. GONAL-F [Suspect]
     Active Substance: FOLLITROPIN
     Dosage: FOR 2 DAYS
     Route: 058
     Dates: start: 201611, end: 201611
  3. GONAL-F [Suspect]
     Active Substance: FOLLITROPIN
     Indication: INFERTILITY
     Dosage: FOR 8 DAYS
     Route: 058
     Dates: start: 201611, end: 201611

REACTIONS (1)
  - Cytomegalovirus infection [Unknown]

NARRATIVE: CASE EVENT DATE: 201611
